FAERS Safety Report 11508371 (Version 1)
Quarter: 2015Q3

REPORT INFORMATION
  Report Type: Spontaneous
  Country: JP (occurrence: JP)
  Receive Date: 20150915
  Receipt Date: 20150915
  Transmission Date: 20151125
  Serious: Yes (Other)
  Sender: FDA-Public Use
  Company Number: JP-GLAXOSMITHKLINE-JP2015JPN127652

PATIENT
  Age: 41 Year
  Sex: Female

DRUGS (11)
  1. VINCRISTINE SULFATE. [Concomitant]
     Active Substance: VINCRISTINE SULFATE
  2. PREDNISOLONE. [Concomitant]
     Active Substance: PREDNISOLONE
     Dosage: UNK
  3. PREDNISOLONE. [Concomitant]
     Active Substance: PREDNISOLONE
     Dosage: 10 MG, 1D
     Route: 048
  4. FLUDARABINE PHOSPHATE. [Concomitant]
     Active Substance: FLUDARABINE PHOSPHATE
  5. ARZERRA [Suspect]
     Active Substance: OFATUMUMAB
     Route: 041
  6. DOXORUBICIN HYDROCHLORIDE. [Concomitant]
     Active Substance: DOXORUBICIN HYDROCHLORIDE
  7. PREDNISOLONE. [Concomitant]
     Active Substance: PREDNISOLONE
     Dosage: 30 MG, 1D
     Route: 048
  8. PREDNISOLONE. [Concomitant]
     Active Substance: PREDNISOLONE
     Dosage: 50 MG, 1D
     Route: 048
  9. BORTEZOMIB [Concomitant]
     Active Substance: BORTEZOMIB
  10. RITUXIMAB (GENETICAL RECOMBINATION) [Concomitant]
  11. CYCLOPHOSPHAMIDE. [Concomitant]
     Active Substance: CYCLOPHOSPHAMIDE

REACTIONS (11)
  - Lymphoma [Unknown]
  - Skin exfoliation [Unknown]
  - Hyperthermia [Unknown]
  - Pleural effusion [Unknown]
  - Stevens-Johnson syndrome [Unknown]
  - Epidermal necrosis [Unknown]
  - Blister [Unknown]
  - Ocular hyperaemia [Unknown]
  - Erythema [Unknown]
  - Oral mucosa erosion [Unknown]
  - Toxic epidermal necrolysis [Unknown]
